FAERS Safety Report 25678861 (Version 2)
Quarter: 2025Q4

REPORT INFORMATION
  Report Type: Report from Study
  Country: EU (occurrence: EU)
  Receive Date: 20250814
  Receipt Date: 20251117
  Transmission Date: 20260118
  Serious: Yes (Hospitalization)
  Sender: ABBVIE
  Company Number: EU-ABBVIE-6410330

PATIENT
  Age: 83 Year
  Sex: Male

DRUGS (7)
  1. CARBIDOPA\LEVODOPA [Suspect]
     Active Substance: CARBIDOPA\LEVODOPA
     Indication: Parkinson^s disease
     Dosage: CR: 3.0 ML/H, ED: 2.6 ML, 16 HOURS OF THERAPY
     Route: 050
     Dates: start: 20180815
  2. CARBIDOPA\LEVODOPA [Suspect]
     Active Substance: CARBIDOPA\LEVODOPA
     Dosage: CR: 2.6 ML/H, ED: 2.5 ML, 16 HOURS OF THERAPY
     Route: 050
  3. SILVER SULFADIAZINE [Concomitant]
     Active Substance: SILVER SULFADIAZINE
     Indication: Product used for unknown indication
  4. Tamsunar [Concomitant]
     Indication: Product used for unknown indication
  5. QUETIAPINE [Concomitant]
     Active Substance: QUETIAPINE
     Indication: Parkinson^s disease
     Dosage: 25
  6. BENSERAZIDE HYDROCHLORIDE\LEVODOPA [Concomitant]
     Active Substance: BENSERAZIDE HYDROCHLORIDE\LEVODOPA
     Indication: Parkinson^s disease
  7. BACLOFEN [Concomitant]
     Active Substance: BACLOFEN
     Indication: Product used for unknown indication
     Dosage: 10

REACTIONS (15)
  - Device dislocation [Unknown]
  - Scabies [Unknown]
  - Embedded device [Unknown]
  - Hyperkinesia [Unknown]
  - Pneumonia aspiration [Unknown]
  - Pseudomonas infection [Unknown]
  - Hypokalaemia [Unknown]
  - Device breakage [Unknown]
  - Mitral valve incompetence [Unknown]
  - Aortic valve incompetence [Unknown]
  - Cognitive disorder [Unknown]
  - Camptocormia [Unknown]
  - Spinal osteoarthritis [Unknown]
  - Angina pectoris [Recovered/Resolved]
  - Scoliosis [Unknown]

NARRATIVE: CASE EVENT DATE: 20241101
